FAERS Safety Report 5953421-X (Version None)
Quarter: 2008Q4

REPORT INFORMATION
  Report Type: 
  Country: None (occurrence: None)
  Receive Date: 20081114
  Receipt Date: 20081110
  Transmission Date: 20090506
  Serious: Yes (Other)
  Sender: FDA-Public Use
  Company Number: JP-MERCK-0811USA01698

PATIENT
  Age: 76 Year
  Sex: Female

DRUGS (4)
  1. SINGULAIR [Suspect]
     Indication: ASTHMA
     Route: 048
     Dates: start: 20080417
  2. MUCOSOLVAN L [Concomitant]
     Route: 048
     Dates: start: 20080417
  3. CLARITHROMYCIN [Concomitant]
     Route: 048
     Dates: start: 20080417
  4. WARFARIN POTASSIUM [Concomitant]
     Indication: CEREBRAL INFARCTION
     Route: 048

REACTIONS (1)
  - HAEMOPTYSIS [None]
